FAERS Safety Report 4763896-X (Version None)
Quarter: 2005Q3

REPORT INFORMATION
  Report Type: 
  Country: None (occurrence: None)
  Receive Date: 20050906
  Receipt Date: 20050510
  Transmission Date: 20060218
  Serious: No
  Sender: FDA-Public Use
  Company Number: 2005-BP-07786BP

PATIENT
  Age: 73 Year
  Sex: Female

DRUGS (11)
  1. SPIRIVA [Suspect]
     Indication: CHRONIC OBSTRUCTIVE PULMONARY DISEASE
     Dosage: 18 MCG (18 MCG, QD) IH
     Route: 055
     Dates: start: 20040701
  2. FLOVENT [Concomitant]
  3. ALBUTEROL [Concomitant]
  4. SEREVENT [Concomitant]
  5. ACCOLATE [Concomitant]
  6. CAPTOPRIL [Concomitant]
  7. FUROSEMIDE [Concomitant]
  8. ISOSORBIDE (ISOSORBIDE) [Concomitant]
  9. POTASSIUM [Concomitant]
  10. RANITIDINE [Concomitant]
  11. SPIRIVA [Suspect]

REACTIONS (1)
  - CHEST DISCOMFORT [None]
